FAERS Safety Report 7295889-5 (Version None)
Quarter: 2011Q1

REPORT INFORMATION
  Report Type: 
  Country: None (occurrence: None)
  Receive Date: 20110216
  Receipt Date: 20110209
  Transmission Date: 20110831
  Serious: Yes (Death, Life-Threatening)
  Sender: FDA-Public Use
  Company Number: JP-ROCHE-709416

PATIENT
  Sex: Male
  Weight: 62 kg

DRUGS (29)
  1. PREDNISOLONE [Concomitant]
     Dosage: FORM: PEORAL AGENT.
     Route: 048
     Dates: end: 20090122
  2. METHYCOBAL [Concomitant]
     Dosage: DOSE FORM: PERORAL AGENT
     Route: 048
  3. VOLTAREN [Concomitant]
     Dosage: DOSE FORM: SUSTAINED RELEASE CAPSULE
     Route: 048
  4. PARIET [Concomitant]
     Route: 048
  5. FASTIC [Concomitant]
     Route: 048
  6. TOCILIZUMAB [Suspect]
     Route: 041
     Dates: start: 20090327, end: 20090327
  7. TOCILIZUMAB [Suspect]
     Route: 041
     Dates: start: 20090830, end: 20090830
  8. TOCILIZUMAB [Suspect]
     Indication: RHEUMATOID ARTHRITIS
     Route: 041
     Dates: start: 20080604, end: 20080604
  9. TOCILIZUMAB [Suspect]
     Route: 041
     Dates: start: 20080804, end: 20080804
  10. TOCILIZUMAB [Suspect]
     Route: 041
     Dates: start: 20081128, end: 20081128
  11. TOCILIZUMAB [Suspect]
     Route: 041
     Dates: start: 20090220, end: 20090220
  12. TOCILIZUMAB [Suspect]
     Route: 041
     Dates: start: 20100409, end: 20100409
  13. METOLATE [Concomitant]
     Dosage: NOTE: DIVIDED INTO 3 DOSES
     Route: 048
  14. PREDNISOLONE [Concomitant]
     Route: 048
     Dates: start: 20090123
  15. MAGMITT [Concomitant]
     Route: 048
  16. TOCILIZUMAB [Suspect]
     Route: 041
     Dates: start: 20081031, end: 20081031
  17. TOCILIZUMAB [Suspect]
     Route: 041
     Dates: start: 20080905, end: 20080905
  18. TOCILIZUMAB [Suspect]
     Route: 041
     Dates: start: 20081226, end: 20081226
  19. TOCILIZUMAB [Suspect]
     Route: 041
     Dates: start: 20090619, end: 20090619
  20. TOCILIZUMAB [Suspect]
     Route: 041
     Dates: start: 20090724, end: 20090724
  21. TOCILIZUMAB [Suspect]
     Dosage: FROM: INJECTION.
     Route: 041
     Dates: start: 20080707, end: 20080707
  22. TOCILIZUMAB [Suspect]
     Route: 041
     Dates: start: 20090123, end: 20090123
  23. TOCILIZUMAB [Suspect]
     Route: 041
     Dates: start: 20090522, end: 20090522
  24. TOCILIZUMAB [Suspect]
     Route: 041
     Dates: start: 20081003, end: 20081003
  25. FERROUS CITRATE [Concomitant]
     Route: 048
  26. TOCILIZUMAB [Suspect]
     Route: 041
     Dates: start: 20090424, end: 20090424
  27. ISCOTIN [Concomitant]
     Route: 048
  28. ALLELOCK [Concomitant]
     Route: 048
  29. GASMOTIN [Concomitant]
     Route: 048

REACTIONS (1)
  - INTERSTITIAL LUNG DISEASE [None]
